FAERS Safety Report 12938734 (Version 1)
Quarter: 2016Q4

REPORT INFORMATION
  Report Type: Report from Study
  Country: CZ (occurrence: CZ)
  Receive Date: 20161115
  Receipt Date: 20161115
  Transmission Date: 20170207
  Serious: Yes (Death, Other)
  Sender: FDA-Public Use
  Company Number: PHHY2016CZ140931

PATIENT
  Sex: Male

DRUGS (2)
  1. SANDOSTATIN LAR DEPOT [Suspect]
     Active Substance: OCTREOTIDE ACETATE
     Dosage: 30 OT, UNK
     Route: 065
     Dates: start: 20110228
  2. SANDOSTATIN LAR DEPOT [Suspect]
     Active Substance: OCTREOTIDE ACETATE
     Indication: NEUROENDOCRINE TUMOUR
     Dosage: 20 OT, UNK
     Route: 065
     Dates: start: 20100201

REACTIONS (8)
  - Small intestine carcinoma [Fatal]
  - Carcinoid heart disease [Unknown]
  - Lymphoedema [Unknown]
  - Vascular compression [Unknown]
  - Hepatic enzyme increased [Unknown]
  - Hypophagia [Unknown]
  - Malnutrition [Unknown]
  - Hepatic failure [Unknown]
